FAERS Safety Report 17690635 (Version 1)
Quarter: 2020Q2

REPORT INFORMATION
  Report Type: Spontaneous
  Country: FR (occurrence: FR)
  Receive Date: 20200421
  Receipt Date: 20200421
  Transmission Date: 20200714
  Serious: Yes (Hospitalization, Other)
  Sender: FDA-Public Use
  Company Number: FR-AUROBINDO-AUR-APL-2020-019731

PATIENT
  Age: 32 Year
  Sex: Male

DRUGS (3)
  1. IBUPROFEN. [Suspect]
     Active Substance: IBUPROFEN
     Indication: HEADACHE
     Dosage: UNK
     Route: 048
  2. ASPIRINE [Suspect]
     Active Substance: ASPIRIN
     Indication: HEADACHE
     Dosage: UNK
     Route: 048
  3. PROFEMIGR [Suspect]
     Active Substance: KETOPROFEN
     Indication: HEADACHE
     Dosage: 300 MILLIGRAM, ONCE A DAY
     Route: 048
     Dates: start: 20171009, end: 20171015

REACTIONS (3)
  - Streptococcal infection [Recovered/Resolved]
  - Brain abscess [Recovered/Resolved]
  - Fusobacterium infection [Recovered/Resolved]

NARRATIVE: CASE EVENT DATE: 20171016
